FAERS Safety Report 10175961 (Version 1)
Quarter: 2014Q2

REPORT INFORMATION
  Report Type: Spontaneous
  Country: US (occurrence: None)
  Receive Date: 20140515
  Receipt Date: 20140515
  Transmission Date: 20141212
  Serious: No
  Sender: FDA-Public Use
  Company Number: None

PATIENT
  Age: 66 Year
  Sex: Female

DRUGS (1)
  1. CAPECITABINE [Suspect]
     Dosage: 2000MG IN AM AND 1500MG IN PM DAILY ORAL
     Route: 048
     Dates: start: 20140402

REACTIONS (11)
  - Oral mucosal blistering [None]
  - Blister [None]
  - Burning sensation [None]
  - Feeling abnormal [None]
  - Lung disorder [None]
  - Painful respiration [None]
  - Dysgeusia [None]
  - Diarrhoea [None]
  - Sneezing [None]
  - Cough [None]
  - Rhinorrhoea [None]
